FAERS Safety Report 6384363-6 (Version None)
Quarter: 2009Q4

REPORT INFORMATION
  Report Type: 
  Country: None (occurrence: None)
  Receive Date: 20091001
  Receipt Date: 20090922
  Transmission Date: 20100525
  Serious: Yes (Hospitalization)
  Sender: FDA-Public Use
  Company Number: FR-WYE-H11204609

PATIENT
  Age: 83 Year
  Sex: Male

DRUGS (2)
  1. CORDARONE [Suspect]
     Indication: ARRHYTHMIA
     Route: 048
     Dates: start: 20060101, end: 20090901
  2. CORDARONE [Suspect]
     Indication: ATRIAL FIBRILLATION
     Dosage: 80 TABLETS ONCE
     Route: 048
     Dates: start: 20090920, end: 20090920

REACTIONS (3)
  - BRADYCARDIA [None]
  - INTENTIONAL OVERDOSE [None]
  - SUICIDE ATTEMPT [None]
